FAERS Safety Report 5740206-2 (Version None)
Quarter: 2008Q2

REPORT INFORMATION
  Report Type: 
  Country: None (occurrence: None)
  Receive Date: 20080516
  Receipt Date: 20080505
  Transmission Date: 20081010
  Serious: Yes (Other)
  Sender: FDA-Public Use
  Company Number: US-WYE-H03939008

PATIENT
  Age: 82 Year
  Sex: Male

DRUGS (7)
  1. TORISEL [Suspect]
     Indication: METASTATIC RENAL CELL CARCINOMA
     Route: 042
     Dates: start: 20080401, end: 20080408
  2. COMPAZINE [Concomitant]
     Dosage: UNKNOWN
  3. WARFARIN SODIUM [Concomitant]
     Dosage: UNKNOWN
  4. HYDROCHLOROTHIAZIDE [Concomitant]
     Dosage: UNKNOWN
  5. ALLOPURINOL [Concomitant]
     Dosage: UNKNOWN
  6. FLOMAX [Concomitant]
     Dosage: UNKNOWN
  7. COZAAR [Concomitant]
     Dosage: UNKNOWN

REACTIONS (8)
  - DEHYDRATION [None]
  - DYSPNOEA [None]
  - EPISTAXIS [None]
  - FLUSHING [None]
  - MUCOSAL INFLAMMATION [None]
  - PURPURA [None]
  - RASH PRURITIC [None]
  - STOMATITIS [None]
